FAERS Safety Report 4628418-2 (Version None)
Quarter: 2005Q2

REPORT INFORMATION
  Report Type: 
  Country: None (occurrence: None)
  Receive Date: 20050401
  Receipt Date: 20050321
  Transmission Date: 20051028
  Serious: Yes (Hospitalization)
  Sender: FDA-Public Use
  Company Number: 2005047795

PATIENT
  Age: 72 Year
  Sex: Female
  Weight: 61.2356 kg

DRUGS (5)
  1. CELEBREX [Suspect]
     Indication: PAIN
     Dosage: 400 MG (200 MG, 2 IN 1 D), ORAL
     Route: 048
  2. THYROID TAB [Concomitant]
  3. GLUCOSAMINE W/CHONDROITIN SULFATES (ASCORBIC ACID, CHONDROITIN SULFATE [Concomitant]
  4. VITAMINS (VITAMINS) [Concomitant]
  5. CALCIUM (CALCIUM) [Concomitant]

REACTIONS (4)
  - MEDICATION ERROR [None]
  - PAIN [None]
  - SPINAL OPERATION [None]
  - TREATMENT NONCOMPLIANCE [None]
